FAERS Safety Report 11679707 (Version 2)
Quarter: 2015Q4

REPORT INFORMATION
  Report Type: Spontaneous
  Country: US (occurrence: US)
  Receive Date: 20151027
  Receipt Date: 20151104
  Transmission Date: 20160304
  Serious: No
  Sender: FDA-Public Use
  Company Number: US-ELI_LILLY_AND_COMPANY-US201008004496

PATIENT
  Age: 80 Year
  Sex: Female

DRUGS (2)
  1. FORTEO [Suspect]
     Active Substance: TERIPARATIDE
     Dosage: UNK, UNKNOWN
  2. FORTEO [Suspect]
     Active Substance: TERIPARATIDE
     Dosage: UNK, UNKNOWN

REACTIONS (7)
  - Arthralgia [Not Recovered/Not Resolved]
  - Nausea [Unknown]
  - Crying [Unknown]
  - Feeling abnormal [Unknown]
  - Dizziness [Unknown]
  - Injection site bruising [Unknown]
  - Depressed mood [Unknown]
